FAERS Safety Report 19293152 (Version 1)
Quarter: 2021Q2

REPORT INFORMATION
  Report Type: Spontaneous
  Country: US (occurrence: US)
  Receive Date: 20210521
  Receipt Date: 20210521
  Transmission Date: 20210717
  Serious: No
  Sender: FDA-Public Use
  Company Number: None

PATIENT
  Sex: Male

DRUGS (1)
  1. EVEROLIMS 5MG PAR [Suspect]
     Active Substance: EVEROLIMUS
     Indication: RENAL CANCER
     Route: 048
     Dates: start: 202104

REACTIONS (12)
  - Chills [None]
  - Night sweats [None]
  - Depression [None]
  - Vomiting [None]
  - Diarrhoea [None]
  - Fatigue [None]
  - Asthenia [None]
  - Abdominal discomfort [None]
  - Abdominal pain upper [None]
  - Constipation [None]
  - Decreased appetite [None]
  - Candida infection [None]
